FAERS Safety Report 4382109-4 (Version None)
Quarter: 2004Q2

REPORT INFORMATION
  Report Type: 
  Country: None (occurrence: None)
  Receive Date: 20040603
  Receipt Date: 20030327
  Transmission Date: 20050107
  Serious: Yes (Other)
  Sender: FDA-Public Use
  Company Number: 200312914US

PATIENT
  Age: 48 Year

DRUGS (1)
  1. LOVENOX [Suspect]
     Indication: HIP ARTHROPLASTY

REACTIONS (1)
  - PULMONARY EMBOLISM [None]
